FAERS Safety Report 5918188-X (Version None)
Quarter: 2008Q3

REPORT INFORMATION
  Report Type: 
  Country: None (occurrence: None)
  Receive Date: 20080909
  Receipt Date: 20071029
  Transmission Date: 20090109
  Serious: Yes (Death)
  Sender: FDA-Public Use
  Company Number: 143-20785-07101555

PATIENT
  Age: 68 Year
  Sex: Male

DRUGS (3)
  1. THALIDOMIDE [Suspect]
     Indication: MYELOFIBROSIS
     Dosage: 100 MG QD ORAL
     Route: 048
     Dates: start: 20070705
  2. CO-DIOVAN (CO-DIOVAN) [Concomitant]
  3. STEROID (CORTICOSTEROIDS NOS) [Concomitant]

REACTIONS (1)
  - NEOPLASM PROGRESSION [None]
